FAERS Safety Report 8224874-1 (Version None)
Quarter: 2012Q1

REPORT INFORMATION
  Report Type: 
  Country: None (occurrence: None)
  Receive Date: 20120320
  Receipt Date: 20120320
  Transmission Date: 20120608
  Serious: No
  Sender: FDA-Public Use
  Company Number: None

PATIENT
  Sex: Female
  Weight: 47.6277 kg

DRUGS (4)
  1. PHENOBARBITAL TAB [Concomitant]
  2. LEVETIRACETAM [Suspect]
     Dosage: 1500 MG BID PO
     Route: 048
     Dates: start: 20111117
  3. DEPAKOTE ER [Concomitant]
  4. VIMPAT [Concomitant]

REACTIONS (2)
  - PRODUCT SUBSTITUTION ISSUE [None]
  - MEDICATION RESIDUE [None]
